FAERS Safety Report 7529045-X (Version None)
Quarter: 2011Q2

REPORT INFORMATION
  Report Type: 
  Country: None (occurrence: None)
  Receive Date: 20110607
  Receipt Date: 20110531
  Transmission Date: 20111010
  Serious: Yes (Life-Threatening, Hospitalization)
  Sender: FDA-Public Use
  Company Number: JP-PFIZER INC-2010110593

PATIENT
  Age: 48 Year
  Sex: Female
  Weight: 42.3 kg

DRUGS (13)
  1. SUNITINIB MALATE [Suspect]
     Indication: PHAEOCHROMOCYTOMA MALIGNANT
     Dosage: 25 MG, 1X/DAY
     Route: 048
     Dates: start: 20090918, end: 20100719
  2. MAGNESIUM OXIDE [Concomitant]
     Route: 048
  3. PAXIL [Concomitant]
     Route: 048
  4. MIRTAZAPINE [Concomitant]
     Dosage: 15 MG, 1X/DAY
     Route: 048
  5. PROCHLORPERAZINE [Concomitant]
     Route: 048
  6. EVAMYL [Concomitant]
     Dosage: 2 MG, 1X/DAY
     Route: 048
     Dates: start: 20100409
  7. HIRUDOID [Concomitant]
     Route: 062
  8. LAFUTIDINE [Concomitant]
     Dosage: 10 MG, 1X/DAY
     Route: 048
     Dates: start: 20100609
  9. MS CONTIN [Concomitant]
     Route: 048
  10. PRIMPERAN TAB [Concomitant]
     Route: 048
  11. RHYTHMY [Concomitant]
     Route: 048
  12. DOXAZOSIN MESYLATE [Concomitant]
     Route: 048
     Dates: start: 20090919
  13. AMOBAN [Concomitant]
     Dosage: 7.5 MG, 1X/DAY
     Route: 048
     Dates: start: 20100409

REACTIONS (6)
  - BACK PAIN [None]
  - LEUKOPENIA [None]
  - THROMBOCYTOPENIA [None]
  - NAUSEA [None]
  - DECREASED APPETITE [None]
  - MALAISE [None]
